FAERS Safety Report 4820562-X (Version None)
Quarter: 2005Q4

REPORT INFORMATION
  Report Type: 
  Country: None (occurrence: None)
  Receive Date: 20051014
  Receipt Date: 20050630
  Transmission Date: 20060501
  Serious: No
  Sender: FDA-Public Use
  Company Number: 2005SP001678

PATIENT
  Age: 81 Year
  Sex: Female
  Weight: 63.5036 kg

DRUGS (16)
  1. LUNESTA [Suspect]
     Indication: INSOMNIA
     Dosage: 3 MG;HS;ORAL
     Route: 048
     Dates: start: 20050617, end: 20050627
  2. FOLIC ACID [Concomitant]
  3. NEXIUM [Concomitant]
  4. THYROID TAB [Concomitant]
  5. DETROL [Concomitant]
  6. CALCITRIOL [Concomitant]
  7. CALCIUM GLUCONATE [Concomitant]
  8. VYTORIN [Concomitant]
  9. ALTACE [Concomitant]
  10. CELEBREX [Concomitant]
  11. OCUVITE [Concomitant]
  12. VITAMINS [Concomitant]
  13. BIOTIN [Concomitant]
  14. MAGNESIUM [Concomitant]
  15. EVENING PRIMROSE OIL [Concomitant]
  16. LORAZEPAM [Concomitant]

REACTIONS (2)
  - DRY MOUTH [None]
  - DYSGEUSIA [None]
